FAERS Safety Report 12094922 (Version 18)
Quarter: 2019Q4

REPORT INFORMATION
  Report Type: Report from Study
  Country: CZ (occurrence: CZ)
  Receive Date: 20160219
  Receipt Date: 20191203
  Transmission Date: 20200122
  Serious: Yes (Hospitalization)
  Sender: FDA-Public Use
  Company Number: CZ-SA-2016SA026728

PATIENT
  Age: 35 Year
  Sex: Female
  Weight: 64 kg

DRUGS (13)
  1. TRITTICO [Concomitant]
     Active Substance: TRAZODONE HYDROCHLORIDE
     Indication: DRUG THERAPY
     Dosage: 150 MG,QD
     Route: 048
     Dates: start: 20141219
  2. BETMIGA [Concomitant]
     Active Substance: MIRABEGRON
     Indication: DRUG THERAPY
     Dosage: 50 MG,QD
     Route: 048
     Dates: start: 2015
  3. BETMIGA [Concomitant]
     Active Substance: MIRABEGRON
     Indication: MULTIPLE SCLEROSIS
  4. POTASSIUM [Concomitant]
     Active Substance: POTASSIUM
     Indication: PROPHYLAXIS
     Dosage: 500 MG,QD
     Route: 048
     Dates: start: 20141219
  5. METHYLPREDNISOLONE. [Concomitant]
     Active Substance: METHYLPREDNISOLONE
     Indication: MULTIPLE SCLEROSIS RELAPSE
     Dosage: UNK
  6. OMEPRAZOLE. [Concomitant]
     Active Substance: OMEPRAZOLE
     Indication: PROPHYLAXIS
     Dosage: 20 MG,QD
     Route: 048
     Dates: start: 20141212
  7. CONCOR [Concomitant]
     Active Substance: BISOPROLOL FUMARATE
     Dosage: 5 MG,QD
     Route: 048
     Dates: start: 20151001
  8. VESICARE [Concomitant]
     Active Substance: SOLIFENACIN SUCCINATE
     Indication: MULTIPLE SCLEROSIS
     Dosage: 10 MG,QD
     Route: 048
     Dates: start: 2015
  9. ACICLOVIR [Concomitant]
     Active Substance: ACYCLOVIR
     Indication: PROPHYLAXIS
     Dosage: 400 MG,QD
     Route: 048
     Dates: start: 20151102, end: 20151130
  10. LYRICA [Concomitant]
     Active Substance: PREGABALIN
     Indication: MULTIPLE SCLEROSIS
     Dosage: 150 MG,QD
     Route: 048
     Dates: start: 20150828
  11. ALEMTUZUMAB [Suspect]
     Active Substance: ALEMTUZUMAB
     Indication: MULTIPLE SCLEROSIS RELAPSE
     Dosage: 12 MG,QD
     Route: 041
     Dates: start: 20151102, end: 20151106
  12. TRITTICO [Concomitant]
     Active Substance: TRAZODONE HYDROCHLORIDE
     Indication: MULTIPLE SCLEROSIS
  13. MAGNESIUM [Concomitant]
     Active Substance: MAGNESIUM
     Indication: MULTIPLE SCLEROSIS
     Dosage: 500 MG,QD
     Route: 048
     Dates: start: 20150605

REACTIONS (9)
  - Gait disturbance [Recovering/Resolving]
  - Urticaria [Recovered/Resolved]
  - Urinary tract infection [Recovered/Resolved]
  - Multiple sclerosis relapse [Recovered/Resolved]
  - Acute motor axonal neuropathy [Recovering/Resolving]
  - Paraparesis [Recovering/Resolving]
  - Respiratory tract infection [Recovered/Resolved]
  - Herpes zoster [Recovered/Resolved]
  - Normochromic normocytic anaemia [Recovered/Resolved]

NARRATIVE: CASE EVENT DATE: 20151106
